FAERS Safety Report 8762644 (Version 3)
Quarter: 2012Q4

REPORT INFORMATION
  Report Type: 
  Country: US (occurrence: US)
  Receive Date: 20120830
  Receipt Date: 20121109
  Transmission Date: 20130627
  Serious: Yes (Other)
  Sender: FDA-Public Use
  Company Number: US-PFIZER INC-2012211442

PATIENT
  Age: 57 Year
  Sex: Female

DRUGS (1)
  1. EPIPEN [Suspect]
     Indication: ALLERGIC REACTION
     Dosage: 0.3 mg, as needed
     Dates: start: 20120505

REACTIONS (2)
  - Product quality issue [Recovered/Resolved]
  - Drug ineffective [Recovered/Resolved]
